FAERS Safety Report 15448257 (Version 1)
Quarter: 2018Q3

REPORT INFORMATION
  Report Type: Report from Study
  Country: None (occurrence: US)
  Receive Date: 20180929
  Receipt Date: 20180929
  Transmission Date: 20181010
  Serious: Yes (Hospitalization)
  Sender: FDA-Public Use
  Company Number: US-ABBVIE-18K-163-2499151-00

PATIENT
  Sex: Male

DRUGS (3)
  1. LASIX [Concomitant]
     Active Substance: FUROSEMIDE
     Dates: start: 2018
  2. LASIX [Concomitant]
     Active Substance: FUROSEMIDE
     Indication: PRODUCT USED FOR UNKNOWN INDICATION
     Dates: end: 2018
  3. VENCLEXTA [Suspect]
     Active Substance: VENETOCLAX
     Indication: 5Q MINUS SYNDROME
     Dosage: AS DIRECTED
     Route: 048
     Dates: start: 20180605

REACTIONS (3)
  - Fluid overload [Recovering/Resolving]
  - Renal disorder [Unknown]
  - Ureteric stenosis [Unknown]

NARRATIVE: CASE EVENT DATE: 2018
